FAERS Safety Report 11952684 (Version 1)
Quarter: 2016Q1

REPORT INFORMATION
  Report Type: Spontaneous
  Country: US (occurrence: US)
  Receive Date: 20160126
  Receipt Date: 20160126
  Transmission Date: 20160526
  Serious: Yes (Death)
  Sender: FDA-Public Use
  Company Number: US-LPDUSPRD-20160051

PATIENT
  Age: 57 Year
  Sex: Male

DRUGS (9)
  1. DEXAMETHASONE SODIUM PHOSPHATE INJECTION, USP (4901-25) [Suspect]
     Active Substance: DEXAMETHASONE SODIUM PHOSPHATE
     Dosage: DOSE NOT PROVIDED
     Route: 065
     Dates: end: 201209
  2. CYCLOPHOSPHAMIDE. [Suspect]
     Active Substance: CYCLOPHOSPHAMIDE
     Dosage: DOSE NOT PROVIDED
     Route: 065
     Dates: end: 201209
  3. DOXORUBICIN [Suspect]
     Active Substance: DOXORUBICIN
     Dosage: DOSE NOT PROVIDED
     Route: 065
     Dates: end: 201209
  4. VINCRISTINE [Suspect]
     Active Substance: VINCRISTINE
     Dosage: DOSE NOT PROVIDED
     Route: 065
     Dates: end: 201209
  5. PREDNISONE. [Suspect]
     Active Substance: PREDNISONE
     Dosage: DOSE NOT PROVIDED
     Route: 065
     Dates: start: 201212, end: 201401
  6. 6-MERCAPTOPURINE [Suspect]
     Active Substance: MERCAPTOPURINE
     Dosage: DOSE NOT PROVIDED
     Route: 065
     Dates: start: 201212, end: 201401
  7. RITUXIMAB [Suspect]
     Active Substance: RITUXIMAB
     Dosage: DOSE NOT PROVIDED
     Route: 065
     Dates: end: 201209
  8. VINCRISTINE [Suspect]
     Active Substance: VINCRISTINE
     Dosage: DOSE NOT PROVIDED
     Route: 065
     Dates: start: 201212, end: 201401
  9. METHOTREXATE [Suspect]
     Active Substance: METHOTREXATE
     Dosage: DOSE NOT PROVIDED
     Route: 065
     Dates: start: 201212, end: 201401

REACTIONS (1)
  - Acute myeloid leukaemia [Fatal]

NARRATIVE: CASE EVENT DATE: 201401
